FAERS Safety Report 6424565-3 (Version None)
Quarter: 2009Q4

REPORT INFORMATION
  Report Type: 
  Country: None (occurrence: None)
  Receive Date: 20091103
  Receipt Date: 20091020
  Transmission Date: 20100525
  Serious: Yes (Hospitalization)
  Sender: FDA-Public Use
  Company Number: PHHY2009JP42095

PATIENT
  Sex: Male
  Weight: 44 kg

DRUGS (2)
  1. DIOVAN T30230+TAB+HY [Suspect]
     Indication: HYPERTENSION
     Dosage: 160 MG, QD
     Route: 048
     Dates: start: 20080626, end: 20081107
  2. CALBLOCK [Concomitant]
     Dosage: 16 MG
     Route: 048
     Dates: start: 20080626, end: 20081107

REACTIONS (1)
  - LUNG NEOPLASM MALIGNANT [None]
